FAERS Safety Report 5207799-5 (Version None)
Quarter: 2006Q4

REPORT INFORMATION
  Report Type: 
  Country: None (occurrence: None)
  Receive Date: 20061030
  Receipt Date: 20060816
  Transmission Date: 20070319
  Serious: No
  Sender: FDA-Public Use
  Company Number: 2006CT000383

PATIENT
  Age: 58 Year
  Sex: Female
  Weight: 68.2 kg

DRUGS (14)
  1. VENTAVIS [Suspect]
     Indication: PULMONARY HYPERTENSION
     Dosage: 2.5 UG; 6XD; INH
     Route: 055
     Dates: start: 20050422
  2. HUMULIN N [Concomitant]
  3. REGULAR INSULIN [Concomitant]
  4. BUMEX [Concomitant]
  5. LORTAB [Concomitant]
  6. DOCUSATE SODIUM [Concomitant]
  7. OXYCODONE HCL [Concomitant]
  8. POTASSIUM CHLORIDE [Concomitant]
  9. ALLOPURINOL SODIUM [Concomitant]
  10. LANOXIN [Concomitant]
  11. VITAMIN CAP [Concomitant]
  12. PREDNISONE [Concomitant]
  13. SILDENAFIL CITRATE [Concomitant]
  14. METHADONE HCL [Concomitant]

REACTIONS (4)
  - DRY THROAT [None]
  - OXYGEN SATURATION DECREASED [None]
  - PHARYNGOLARYNGEAL PAIN [None]
  - SLEEP WALKING [None]
